FAERS Safety Report 6671674-X (Version None)
Quarter: 2010Q2

REPORT INFORMATION
  Report Type: 
  Country: None (occurrence: None)
  Receive Date: 20100405
  Receipt Date: 20100405
  Transmission Date: 20101027
  Serious: Yes (Death, Life-Threatening, Hospitalization)
  Sender: FDA-Public Use
  Company Number: None

PATIENT
  Age: 73 Year
  Sex: Female
  Weight: 68 kg

DRUGS (2)
  1. TAMOXIFEN CITRATE [Suspect]
     Indication: NEOPLASM MALIGNANT
     Dosage: 20MG DAILY PO
     Route: 048
     Dates: start: 20071214, end: 20091021
  2. MEGESTROL ACETATE [Suspect]
     Indication: NEOPLASM MALIGNANT
     Dosage: 40MG BID PO
     Route: 048

REACTIONS (3)
  - DEEP VEIN THROMBOSIS [None]
  - LUNG INFILTRATION [None]
  - PULMONARY EMBOLISM [None]
